FAERS Safety Report 19331518 (Version 1)
Quarter: 2021Q2

REPORT INFORMATION
  Report Type: Spontaneous
  Country: IR (occurrence: IR)
  Receive Date: 20210528
  Receipt Date: 20210528
  Transmission Date: 20210717
  Serious: Yes (Hospitalization, Other)
  Sender: FDA-Public Use
  Company Number: IR-GLAXOSMITHKLINE-IRCH2021GSK031294

PATIENT
  Age: 16 Year
  Sex: Male

DRUGS (2)
  1. IBUPROFEN. [Suspect]
     Active Substance: IBUPROFEN
     Indication: BACK PAIN
     Dosage: 400 MG, TID
  2. IBUPROFEN. [Suspect]
     Active Substance: IBUPROFEN
     Indication: MYALGIA

REACTIONS (11)
  - Vomiting [Unknown]
  - Nausea [Unknown]
  - Papilloedema [Unknown]
  - Vision blurred [Unknown]
  - Headache [Unknown]
  - Pyrexia [Unknown]
  - Pleocytosis [Unknown]
  - Meningitis aseptic [Unknown]
  - Nuchal rigidity [Unknown]
  - Photophobia [Unknown]
  - Intracranial pressure increased [Unknown]
